FAERS Safety Report 22623315 (Version 1)
Quarter: 2023Q2

REPORT INFORMATION
  Report Type: Spontaneous
  Country: US (occurrence: US)
  Receive Date: 20230621
  Receipt Date: 20230621
  Transmission Date: 20230722
  Serious: Yes (Other)
  Sender: FDA-Public Use
  Company Number: US-SA-SAC20230619001582

PATIENT
  Sex: Male

DRUGS (4)
  1. ELOCTATE [Suspect]
     Active Substance: EFMOROCTOCOG ALFA
     Indication: Haemorrhage
     Dosage: INFUSE 1400 UNITS (+/- 10%) MONDAY AND THURSDAY FOR BLEEDING
     Route: 042
  2. ELOCTATE [Suspect]
     Active Substance: EFMOROCTOCOG ALFA
     Indication: Haemorrhage
     Dosage: INFUSE 1400 UNITS (+/- 10%) MONDAY AND THURSDAY FOR BLEEDING
     Route: 042
  3. ELOCTATE [Suspect]
     Active Substance: EFMOROCTOCOG ALFA
     Dosage: INFUSE 1400 UNITS (+/- 10%) DAILY PRN  FOR BLEEDING
     Route: 042
  4. ELOCTATE [Suspect]
     Active Substance: EFMOROCTOCOG ALFA
     Dosage: INFUSE 1400 UNITS (+/- 10%) DAILY PRN  FOR BLEEDING
     Route: 042

REACTIONS (1)
  - Haemorrhage [Not Recovered/Not Resolved]

NARRATIVE: CASE EVENT DATE: 20230612
